FAERS Safety Report 5280573-X (Version None)
Quarter: 2007Q1

REPORT INFORMATION
  Report Type: 
  Country: None (occurrence: None)
  Receive Date: 20061229
  Receipt Date: 20060828
  Transmission Date: 20070707
  Serious: Yes (Other)
  Sender: FDA-Public Use
  Company Number: 2006UW14741

PATIENT
  Age: 68 Year
  Sex: Female
  Weight: 63.502 kg

DRUGS (2)
  1. CRESTOR [Suspect]
     Indication: BLOOD CHOLESTEROL INCREASED
     Dosage: 5 MG DAILY PO
     Route: 048
     Dates: start: 20060716, end: 20060718
  2. SYNTHROID [Concomitant]

REACTIONS (1)
  - HYPOAESTHESIA [None]
